FAERS Safety Report 22767009 (Version 2)
Quarter: 2024Q1

REPORT INFORMATION
  Report Type: Spontaneous
  Country: IN (occurrence: IN)
  Receive Date: 20230731
  Receipt Date: 20240216
  Transmission Date: 20240410
  Serious: Yes (Other)
  Sender: FDA-Public Use
  Company Number: IN-PFIZER INC-PV202300130171

PATIENT
  Age: 63 Year
  Sex: Male
  Weight: 58.6 kg

DRUGS (3)
  1. CRIZOTINIB [Suspect]
     Active Substance: CRIZOTINIB
     Indication: Lung adenocarcinoma
     Dosage: UNK
     Route: 048
     Dates: start: 202206
  2. CRIZOTINIB [Suspect]
     Active Substance: CRIZOTINIB
     Dosage: 200 MG, 2X/DAY
     Route: 048
  3. CRIZOTINIB [Suspect]
     Active Substance: CRIZOTINIB
     Dosage: 250, 1-0-1 X 3 MONTHS

REACTIONS (5)
  - Atrial fibrillation [Unknown]
  - Cough [Unknown]
  - Heart sounds abnormal [Unknown]
  - Respiratory disorder [Unknown]
  - Dyspnoea exertional [Unknown]
